FAERS Safety Report 19882185 (Version 1)
Quarter: 2021Q3

REPORT INFORMATION
  Report Type: Report from Study
  Country: US (occurrence: US)
  Receive Date: 20210924
  Receipt Date: 20210924
  Transmission Date: 20211014
  Serious: No
  Sender: FDA-Public Use
  Company Number: US-B.I. PHARMACEUTICALS,INC./RIDGEFIELD-2021-BI-128713

PATIENT
  Sex: Female

DRUGS (3)
  1. OFEV [Suspect]
     Active Substance: NINTEDANIB
     Route: 048
     Dates: start: 20210823
  2. OFEV [Suspect]
     Active Substance: NINTEDANIB
     Dosage: DOSE 100 MG
     Route: 048
     Dates: start: 20210905, end: 20210920
  3. OFEV [Suspect]
     Active Substance: NINTEDANIB
     Indication: IDIOPATHIC PULMONARY FIBROSIS
     Route: 048
     Dates: end: 20210621

REACTIONS (7)
  - Diarrhoea [Recovered/Resolved]
  - Heart rate increased [Unknown]
  - Headache [Recovered/Resolved]
  - Nausea [Recovered/Resolved]
  - Dizziness [Unknown]
  - Vomiting [Unknown]
  - Decreased appetite [Recovered/Resolved]
